FAERS Safety Report 14577382 (Version 1)
Quarter: 2018Q1

REPORT INFORMATION
  Report Type: Spontaneous
  Country: US (occurrence: US)
  Receive Date: 20180226
  Receipt Date: 20180226
  Transmission Date: 20180509
  Serious: Yes (Other)
  Sender: FDA-Public Use
  Company Number: None

PATIENT
  Age: 78 Year
  Weight: 100.35 kg

DRUGS (6)
  1. ELIQUIS [Suspect]
     Active Substance: APIXABAN
     Indication: THROMBOSIS PROPHYLAXIS
     Dosage: ?          QUANTITY:60 TABLET(S);?
     Route: 048
     Dates: start: 20180207, end: 20180226
  2. ATORVASTATIN [Concomitant]
     Active Substance: ATORVASTATIN
  3. VITAMIN B12 COMPLEX [Concomitant]
  4. FISH OIL [Concomitant]
     Active Substance: FISH OIL
  5. DAILY VITAMINS ^ONE A DAY^ [Concomitant]
     Active Substance: VITAMINS
  6. GLUCOSAMINE-CONDROITEN [Concomitant]

REACTIONS (3)
  - Pruritus [None]
  - Rash [None]
  - Erythema [None]

NARRATIVE: CASE EVENT DATE: 20180209
